FAERS Safety Report 7604298-8 (Version None)
Quarter: 2011Q3

REPORT INFORMATION
  Report Type: 
  Country: None (occurrence: None)
  Receive Date: 20110712
  Receipt Date: 20110629
  Transmission Date: 20111222
  Serious: Yes (Hospitalization)
  Sender: FDA-Public Use
  Company Number: PHHY2011IT58691

PATIENT
  Age: 7 Year
  Sex: Female

DRUGS (1)
  1. EXJADE [Suspect]
     Indication: THALASSAEMIA BETA
     Dosage: 20 MG/KG, DAILY
     Route: 048

REACTIONS (5)
  - NEUTROPENIA [None]
  - MASTOIDITIS [None]
  - PYREXIA [None]
  - LEUKOPENIA [None]
  - MENINGITIS [None]
